FAERS Safety Report 4555679-0 (Version None)
Quarter: 2005Q1

REPORT INFORMATION
  Report Type: 
  Country: None (occurrence: None)
  Receive Date: 20050119
  Receipt Date: 20041223
  Transmission Date: 20050727
  Serious: Yes (Other)
  Sender: FDA-Public Use
  Company Number: PHRM2004TN03761

PATIENT
  Age: 70 Year
  Sex: Female
  Weight: 98 kg

DRUGS (2)
  1. AMLOR [Suspect]
     Dosage: UNK, UNK
     Route: 048
     Dates: start: 20041130
  2. COTAREG [Suspect]
     Indication: HYPERTENSION
     Dosage: 160/25 MG/DAY
     Route: 048
     Dates: start: 20041219, end: 20041221

REACTIONS (4)
  - BLOOD PRESSURE INCREASED [None]
  - HYPOTENSION [None]
  - POLYURIA [None]
  - SYNCOPE [None]
